FAERS Safety Report 17174892 (Version 1)
Quarter: 2019Q4

REPORT INFORMATION
  Report Type: Other
  Country: CA (occurrence: CA)
  Receive Date: 20191219
  Receipt Date: 20191219
  Transmission Date: 20200122
  Serious: Yes (Other)
  Sender: FDA-Public Use
  Company Number: CA-BECTON DICKINSON-2019BDN00431

PATIENT
  Age: 42 Year
  Sex: Female
  Weight: 81 kg

DRUGS (21)
  1. ACTEMRA [Suspect]
     Active Substance: TOCILIZUMAB
  2. ZOPICLONE [Concomitant]
     Active Substance: ZOPICLONE
  3. CHLORHEXIDINE [Suspect]
     Active Substance: CHLORHEXIDINE
  4. ARAVA [Suspect]
     Active Substance: LEFLUNOMIDE
  5. ORENCIA [Suspect]
     Active Substance: ABATACEPT
  6. HYDROXYCHLOROQUINE [Concomitant]
     Active Substance: HYDROXYCHLOROQUINE
  7. PREDNISONE. [Concomitant]
     Active Substance: PREDNISONE
  8. TYLENOL [Concomitant]
     Active Substance: ACETAMINOPHEN
  9. VENTOLIN [Concomitant]
     Active Substance: ALBUTEROL SULFATE
  10. IBUPROFEN. [Concomitant]
     Active Substance: IBUPROFEN
  11. METHOTREXATE. [Suspect]
     Active Substance: METHOTREXATE
     Dosage: UNK
  12. SIMPONI [Suspect]
     Active Substance: GOLIMUMAB
     Route: 058
  13. REACTINE [Concomitant]
  14. VITAMIN C [Concomitant]
     Active Substance: ASCORBIC ACID
  15. PERCOCET [Suspect]
     Active Substance: ACETAMINOPHEN\OXYCODONE HYDROCHLORIDE
  16. COENZYME Q10 [Concomitant]
     Active Substance: UBIDECARENONE
  17. PANTOPRAZOLE [Concomitant]
     Active Substance: PANTOPRAZOLE
  18. CIMZIA [Suspect]
     Active Substance: CERTOLIZUMAB PEGOL
     Indication: RHEUMATOID ARTHRITIS
     Dosage: 200 MG
     Route: 058
  19. CIMZIA [Suspect]
     Active Substance: CERTOLIZUMAB PEGOL
     Dosage: 400 MG
     Route: 058
  20. NUTRASEA+D [Concomitant]
  21. ENBREL [Suspect]
     Active Substance: ETANERCEPT
     Indication: RHEUMATOID ARTHRITIS
     Route: 058

REACTIONS (21)
  - Asthenia [Unknown]
  - Off label use [Unknown]
  - Pain [Unknown]
  - Pruritus [Unknown]
  - Respiratory disorder [Unknown]
  - Insomnia [Unknown]
  - Lower respiratory tract infection [Unknown]
  - Night sweats [Unknown]
  - Sinusitis [Unknown]
  - Diarrhoea [Unknown]
  - Ear pain [Unknown]
  - Rash [Unknown]
  - Urticaria [Unknown]
  - Muscle spasticity [Unknown]
  - Peripheral swelling [Unknown]
  - Back pain [Unknown]
  - Body temperature increased [Unknown]
  - Joint swelling [Unknown]
  - Vomiting [Unknown]
  - Abdominal pain upper [Unknown]
  - Headache [Unknown]
